FAERS Safety Report 7338804-8 (Version None)
Quarter: 2011Q1

REPORT INFORMATION
  Report Type: 
  Country: None (occurrence: None)
  Receive Date: 20110308
  Receipt Date: 20110228
  Transmission Date: 20110831
  Serious: Yes (Hospitalization, Disabling)
  Sender: FDA-Public Use
  Company Number: US-MERCK-0704USA05973

PATIENT
  Age: 47 Year
  Sex: Female
  Weight: 82 kg

DRUGS (3)
  1. FOSAMAX [Suspect]
     Indication: OSTEOPOROSIS
     Route: 048
     Dates: start: 19980101, end: 20050801
  2. VICODIN [Concomitant]
     Indication: BACK PAIN
     Route: 065
     Dates: start: 19980101
  3. MORPHINE [Concomitant]
     Indication: BACK PAIN
     Route: 065
     Dates: start: 19980101

REACTIONS (45)
  - BACK DISORDER [None]
  - HYPERTENSION [None]
  - DYSPEPSIA [None]
  - PERIPHERAL ARTERIAL OCCLUSIVE DISEASE [None]
  - BURSITIS [None]
  - NASAL SEPTUM DEVIATION [None]
  - SPINAL OSTEOARTHRITIS [None]
  - JOINT RANGE OF MOTION DECREASED [None]
  - BRONCHITIS [None]
  - DEPRESSION [None]
  - FATIGUE [None]
  - MUSCULOSKELETAL PAIN [None]
  - SALIVARY DUCT OBSTRUCTION [None]
  - PALPITATIONS [None]
  - MEMORY IMPAIRMENT [None]
  - CELLULITIS [None]
  - FALL [None]
  - TINNITUS [None]
  - WOUND DRAINAGE [None]
  - LARYNGITIS [None]
  - ABSCESS [None]
  - COUGH [None]
  - INCREASED TENDENCY TO BRUISE [None]
  - OEDEMA MOUTH [None]
  - CHRONIC OBSTRUCTIVE PULMONARY DISEASE [None]
  - OSTEONECROSIS OF JAW [None]
  - INFECTION [None]
  - IMPAIRED HEALING [None]
  - HEADACHE [None]
  - CHEST PAIN [None]
  - GLUCOSE TOLERANCE IMPAIRED [None]
  - ADVERSE EVENT [None]
  - SPINAL COLUMN STENOSIS [None]
  - INTERVERTEBRAL DISC DEGENERATION [None]
  - OSTEOARTHRITIS [None]
  - PAIN [None]
  - SPINAL COMPRESSION FRACTURE [None]
  - HYPOAESTHESIA [None]
  - MOUTH HAEMORRHAGE [None]
  - MUSCLE SPASMS [None]
  - GINGIVAL BLEEDING [None]
  - ORAL PAIN [None]
  - INSOMNIA [None]
  - CONSTIPATION [None]
  - ANXIETY [None]
